FAERS Safety Report 15225954 (Version 1)
Quarter: 2018Q3

REPORT INFORMATION
  Report Type: Report from Study
  Country: US (occurrence: US)
  Receive Date: 20180801
  Receipt Date: 20180801
  Transmission Date: 20181010
  Serious: Yes (Hospitalization)
  Sender: FDA-Public Use
  Company Number: US-GILEAD-2018-0352711

PATIENT
  Age: 74 Year
  Sex: Female

DRUGS (21)
  1. METOLAZONE. [Concomitant]
     Active Substance: METOLAZONE
  2. PREDNISONE. [Concomitant]
     Active Substance: PREDNISONE
  3. PROMETHEGAN [Concomitant]
     Active Substance: PROMETHAZINE HYDROCHLORIDE
  4. CIPROFLOXACIN. [Concomitant]
     Active Substance: CIPROFLOXACIN
  5. DIOVAN [Concomitant]
     Active Substance: VALSARTAN
  6. VALSARTAN. [Concomitant]
     Active Substance: VALSARTAN
  7. ADCIRCA [Concomitant]
     Active Substance: TADALAFIL
  8. ALREX                              /01388302/ [Concomitant]
  9. CYANOCOBALAMIN. [Concomitant]
     Active Substance: CYANOCOBALAMIN
  10. NITROFURANTOIN MACROCRYSTALS [Concomitant]
     Active Substance: NITROFURANTOIN
  11. PREMARIN [Concomitant]
     Active Substance: ESTROGENS, CONJUGATED
  12. POTASSIUM CHLORIDE. [Concomitant]
     Active Substance: POTASSIUM CHLORIDE
  13. HYDROXYCHLOROQUINE [Concomitant]
     Active Substance: HYDROXYCHLOROQUINE
  14. MYRBETRIQ [Concomitant]
     Active Substance: MIRABEGRON
  15. VITAMIN D                          /00107901/ [Concomitant]
     Active Substance: ERGOCALCIFEROL
  16. SYNTHROID [Concomitant]
     Active Substance: LEVOTHYROXINE SODIUM
  17. AMBRISENTAN [Suspect]
     Active Substance: AMBRISENTAN
     Indication: PULMONARY ARTERIAL HYPERTENSION
     Dosage: 10 MG, QD
     Route: 065
     Dates: start: 20160217
  18. ALPRAZOLAM. [Concomitant]
     Active Substance: ALPRAZOLAM
  19. AZATHIOPRINE. [Concomitant]
     Active Substance: AZATHIOPRINE
  20. FUROSEMIDE. [Concomitant]
     Active Substance: FUROSEMIDE
  21. XIIDRA [Concomitant]
     Active Substance: LIFITEGRAST

REACTIONS (1)
  - Foot fracture [Not Recovered/Not Resolved]
